FAERS Safety Report 5904958-0 (Version None)
Quarter: 2008Q3

REPORT INFORMATION
  Report Type: 
  Country: None (occurrence: None)
  Receive Date: 20080909
  Receipt Date: 20080708
  Transmission Date: 20090109
  Serious: Yes (Hospitalization)
  Sender: FDA-Public Use
  Company Number: 163-20785-08041616

PATIENT
  Age: 63 Year
  Sex: Male

DRUGS (11)
  1. THALOMID [Suspect]
     Indication: MULTIPLE MYELOMA
     Dosage: 100-150MG, DAILY, ORAL ; 50-100MG, DAILY, ORAL
     Route: 048
     Dates: start: 20060828, end: 20061001
  2. THALOMID [Suspect]
     Indication: MULTIPLE MYELOMA
     Dosage: 100-150MG, DAILY, ORAL ; 50-100MG, DAILY, ORAL
     Route: 048
     Dates: start: 20061023, end: 20080325
  3. AMITRIPTYLINE HYDROCHLORIDE [Concomitant]
  4. DECADRON [Concomitant]
  5. COLACE (DOCUSATE SODIUM) [Concomitant]
  6. GLIPIZIDE [Concomitant]
  7. HYDROCHLOROTHIAZIDE [Concomitant]
  8. LISINOPRIL [Concomitant]
  9. PERCOCET [Concomitant]
  10. ZANTAC 150 [Concomitant]
  11. ZOCOR [Concomitant]

REACTIONS (1)
  - MULTIPLE MYELOMA [None]
